FAERS Safety Report 5263139-7 (Version None)
Quarter: 2007Q1

REPORT INFORMATION
  Report Type: 
  Country: None (occurrence: None)
  Receive Date: 20061219
  Receipt Date: 20061017
  Transmission Date: 20070707
  Serious: No
  Sender: FDA-Public Use
  Company Number: 2006US002313

PATIENT
  Sex: Male

DRUGS (3)
  1. VESICARE [Suspect]
     Indication: POLLAKIURIA
  2. FLOMAX [Concomitant]
  3. DIURETICS [Concomitant]

REACTIONS (4)
  - CONSTIPATION [None]
  - DRY MOUTH [None]
  - MICTURITION URGENCY [None]
  - POLLAKIURIA [None]
